FAERS Safety Report 13621909 (Version 1)
Quarter: 2017Q2

REPORT INFORMATION
  Report Type: Spontaneous
  Country: US (occurrence: US)
  Receive Date: 20170607
  Receipt Date: 20170607
  Transmission Date: 20170830
  Serious: No
  Sender: FDA-Public Use
  Company Number: US-ROCHE-1789463

PATIENT
  Age: 69 Year
  Sex: Male
  Weight: 74.8 kg

DRUGS (4)
  1. PROCRIT [Concomitant]
     Active Substance: ERYTHROPOIETIN
     Dosage: 20,000 UNITS SQ WEEKLY FOR 4 WEEKS
     Route: 058
     Dates: start: 20160615
  2. ELOXATIN [Concomitant]
     Active Substance: OXALIPLATIN
     Indication: NEOPLASM MALIGNANT
     Route: 042
     Dates: start: 20160329
  3. XELODA [Suspect]
     Active Substance: CAPECITABINE
     Indication: NEOPLASM MALIGNANT
     Dosage: 5 TABS DAILY FOR 2 WEEKS
     Route: 048
     Dates: start: 20160615
  4. ONDANSETRON [Concomitant]
     Active Substance: ONDANSETRON
     Indication: NEOPLASM MALIGNANT
     Dosage: 4MG/2ML VIALS
     Route: 042
     Dates: start: 20160329

REACTIONS (2)
  - Asthenia [Not Recovered/Not Resolved]
  - Fatigue [Not Recovered/Not Resolved]

NARRATIVE: CASE EVENT DATE: 20160705
